FAERS Safety Report 24729490 (Version 1)
Quarter: 2024Q4

REPORT INFORMATION
  Report Type: Report from Study
  Country: US (occurrence: US)
  Receive Date: 20241213
  Receipt Date: 20241213
  Transmission Date: 20250115
  Serious: No
  Sender: DECIPHERA PHARMACEUTICALS
  Company Number: US-DECIPHERA PHARMACEUTICALS LLC-2024US000984

PATIENT
  Age: 60 Year
  Sex: Male

DRUGS (2)
  1. QINLOCK [Suspect]
     Active Substance: RIPRETINIB
     Indication: Gastrointestinal stromal tumour
     Dosage: 100 MILLIGRAM, QD (100 MG DAILY ALTERNATING WITH 150 MG DAILY)
     Route: 048
     Dates: start: 20231201
  2. QINLOCK [Suspect]
     Active Substance: RIPRETINIB
     Dosage: 150 MILLIGRAM, QD   (100 MG DAILY ALTERNATING WITH 150 MG DAILY)
     Route: 048
     Dates: start: 202312

REACTIONS (1)
  - Rash [Recovered/Resolved]
